FAERS Safety Report 8806050 (Version 1)
Quarter: 2012Q4

REPORT INFORMATION
  Report Type: Spontaneous
  Country: US (occurrence: None)
  Receive Date: 20120919
  Receipt Date: 20120919
  Transmission Date: 20130627
  Serious: Yes (Other)
  Sender: FDA-Public Use
  Company Number: None

PATIENT
  Age: 45 Year
  Sex: Female
  Weight: 114.31 kg

DRUGS (1)
  1. ATORVASTATIN [Suspect]
     Indication: HYPERCHOLESTEREMIA
     Dosage: 1 Tab QD about 1-2 days

REACTIONS (4)
  - Nausea [None]
  - Vomiting [None]
  - Rash pruritic [None]
  - Rash generalised [None]
